FAERS Safety Report 12039438 (Version 1)
Quarter: 2016Q1

REPORT INFORMATION
  Report Type: Report from Study
  Country: US (occurrence: US)
  Receive Date: 20160208
  Receipt Date: 20160208
  Transmission Date: 20160526
  Serious: No
  Sender: FDA-Public Use
  Company Number: US-AMAG PHARMACEUTICALS, INC.-AMAG201501040

PATIENT
  Sex: Female
  Weight: 97.96 kg

DRUGS (2)
  1. PROCARDIA [Concomitant]
     Active Substance: NIFEDIPINE
     Indication: HYPERTENSION
  2. MAKENA [Suspect]
     Active Substance: HYDROXYPROGESTERONE CAPROATE
     Indication: PREMATURE DELIVERY
     Dosage: 250 MG, UNK
     Dates: start: 20150827, end: 20150903

REACTIONS (7)
  - Rash [Unknown]
  - Pruritus [Unknown]
  - Injection site bruising [Unknown]
  - Urticaria [Unknown]
  - Injection site swelling [Unknown]
  - Vomiting [Unknown]
  - Nausea [Unknown]
